FAERS Safety Report 8623410 (Version 2)
Quarter: 2012Q4

REPORT INFORMATION
  Report Type: 
  Country: US (occurrence: US)
  Receive Date: 20120620
  Receipt Date: 20121210
  Transmission Date: 20130627
  Serious: Yes (Other)
  Sender: FDA-Public Use
  Company Number: US-US-EMD SERONO, INC.-7140194

PATIENT
  Sex: Female
  Weight: 77 kg

DRUGS (2)
  1. REBIF [Suspect]
     Indication: PRODUCT USED FOR UNKNOWN INDICATION
     Route: 058
     Dates: start: 20060912, end: 20100701
  2. REBIF [Suspect]
     Route: 058
     Dates: start: 20101116

REACTIONS (1)
  - Staphylococcal infection [Recovering/Resolving]
